FAERS Safety Report 15358241 (Version 2)
Quarter: 2018Q4

REPORT INFORMATION
  Report Type: Report from Study
  Country: IT (occurrence: IT)
  Receive Date: 20180906
  Receipt Date: 20181231
  Transmission Date: 20190204
  Serious: No
  Sender: FDA-Public Use
  Company Number: IT-PFIZER INC-2018359508

PATIENT
  Age: 32 Year
  Sex: Male

DRUGS (7)
  1. CLOMIPHENE CITRATE. [Suspect]
     Active Substance: CLOMIPHENE CITRATE
     Dosage: UNK
  2. 8-TETRAHYDROCANNABINOL [Suspect]
     Active Substance: .DELTA.8-TETRAHYDROCANNABINOL
     Dosage: UNK
  3. BOLDENONE UNDECYLENATE [Suspect]
     Active Substance: BOLDENONE UNDECYLENATE
     Dosage: UNK
  4. METHENOLONE [Suspect]
     Active Substance: METHENOLONE
     Dosage: UNK
  5. OXANDROLONE. [Suspect]
     Active Substance: OXANDROLONE
     Dosage: UNK
  6. STANOZOLOL [Suspect]
     Active Substance: STANOZOLOL
     Dosage: UNK
  7. LORAZEPAM. [Suspect]
     Active Substance: LORAZEPAM
     Dosage: UNK

REACTIONS (1)
  - Testicular atrophy [Unknown]
